FAERS Safety Report 8158292-1 (Version None)
Quarter: 2012Q1

REPORT INFORMATION
  Report Type: 
  Country: None (occurrence: None)
  Receive Date: 20120223
  Receipt Date: 20120216
  Transmission Date: 20120608
  Serious: No
  Sender: FDA-Public Use
  Company Number: US-BIOGENIDEC-2011BI046781

PATIENT
  Age: 41 Year
  Sex: Female

DRUGS (1)
  1. TYSABRI [Suspect]
     Indication: MULTIPLE SCLEROSIS
     Route: 042
     Dates: start: 20071019, end: 20110701

REACTIONS (3)
  - HALLUCINATION [None]
  - DRUG ABUSE [None]
  - CONFUSIONAL STATE [None]
